FAERS Safety Report 9777854 (Version 1)
Quarter: 2013Q4

REPORT INFORMATION
  Report Type: Spontaneous
  Country: US (occurrence: US)
  Receive Date: 20131223
  Receipt Date: 20131223
  Transmission Date: 20140711
  Serious: No
  Sender: FDA-Public Use
  Company Number: US-BIOGENIDEC-2013BI122300

PATIENT
  Age: 59 Year
  Sex: Female

DRUGS (1)
  1. AVONEX [Suspect]
     Indication: MULTIPLE SCLEROSIS
     Route: 030
     Dates: start: 20131120, end: 20131218

REACTIONS (5)
  - Lethargy [Recovered/Resolved]
  - Mobility decreased [Recovered/Resolved]
  - Adverse reaction [Recovered/Resolved]
  - Parkinson^s disease [Not Recovered/Not Resolved]
  - Hyperhidrosis [Recovered/Resolved]
